FAERS Safety Report 4302521-9 (Version None)
Quarter: 2004Q1

REPORT INFORMATION
  Report Type: 
  Country: None (occurrence: None)
  Receive Date: 20040217
  Receipt Date: 20040112
  Transmission Date: 20041129
  Serious: Yes (Disabling)
  Sender: FDA-Public Use
  Company Number: PHEH2004US00603

PATIENT
  Age: 59 Year
  Sex: Male
  Weight: 83.9 kg

DRUGS (4)
  1. GLEEVEC [Suspect]
     Indication: CHRONIC MYELOID LEUKAEMIA
     Dosage: SEE IMAGE
     Route: 048
     Dates: start: 20031127, end: 20031222
  2. GLEEVEC [Suspect]
     Indication: CHRONIC MYELOID LEUKAEMIA
     Dosage: SEE IMAGE
     Route: 048
     Dates: start: 20040101
  3. HYDREA [Concomitant]
  4. ALLOPURINOL [Concomitant]

REACTIONS (2)
  - BONE PAIN [None]
  - PAIN [None]
